FAERS Safety Report 9768170 (Version 2)
Quarter: 2013Q4

REPORT INFORMATION
  Report Type: Spontaneous
  Country: GB (occurrence: GB)
  Receive Date: 20131217
  Receipt Date: 20131217
  Transmission Date: 20140711
  Serious: Yes (Other)
  Sender: FDA-Public Use
  Company Number: GB-GLAXOSMITHKLINE-B0947602A

PATIENT
  Age: 56 Year
  Sex: Female

DRUGS (4)
  1. BECODISK [Suspect]
     Indication: ASTHMA
     Dosage: 400MCG TWICE PER DAY
     Route: 055
  2. BECLOMETHASONE [Suspect]
     Indication: DERMATITIS ATOPIC
     Route: 061
  3. HYDROCORTISONE [Suspect]
     Indication: DERMATITIS ATOPIC
     Dosage: 1%DS TWICE PER DAY
     Route: 061
  4. PREDNISOLONE [Suspect]
     Indication: ECZEMA
     Route: 048

REACTIONS (17)
  - Cushing^s syndrome [Recovered/Resolved]
  - Adrenocortical insufficiency acute [Unknown]
  - Dermatitis atopic [Unknown]
  - Hyperaemia [Unknown]
  - Central obesity [Unknown]
  - Skin striae [Unknown]
  - Skin atrophy [Unknown]
  - Increased tendency to bruise [Unknown]
  - Adrenocorticotropic hormone deficiency [Unknown]
  - Glucose tolerance impaired [Unknown]
  - Osteopenia [Unknown]
  - Asthenia [Unknown]
  - Hypotension [Unknown]
  - Diarrhoea [Unknown]
  - Toxicity to various agents [Unknown]
  - Cushingoid [Unknown]
  - Telangiectasia [Unknown]
